FAERS Safety Report 10963461 (Version 1)
Quarter: 2015Q1

REPORT INFORMATION
  Report Type: Spontaneous
  Country: US (occurrence: None)
  Receive Date: 20150226
  Receipt Date: 20150226
  Transmission Date: 20150721
  Serious: No
  Sender: FDA-Public Use
  Company Number: TPA2009A02959

PATIENT
  Age: 59 Year
  Sex: Female

DRUGS (6)
  1. ULORIC [Suspect]
     Active Substance: FEBUXOSTAT
     Indication: GOUT
     Route: 048
     Dates: start: 20090917, end: 20090924
  2. SYNTHROID [Concomitant]
     Active Substance: LEVOTHYROXINE SODIUM
  3. PLAQUENIL (HYDROXYCHLOROQUINE SULFATE) [Concomitant]
  4. B-12 (CYANOCOBALAMIN) [Concomitant]
  5. PREMPRO (MEDROXYPROGESTERONE ACETATE, ESTROGENS CONJUGATED) [Concomitant]
  6. BENICAR [Concomitant]
     Active Substance: OLMESARTAN MEDOXOMIL

REACTIONS (2)
  - Skin exfoliation [None]
  - Skin fissures [None]

NARRATIVE: CASE EVENT DATE: 200909
